FAERS Safety Report 16552527 (Version 1)
Quarter: 2019Q3

REPORT INFORMATION
  Report Type: Spontaneous
  Country: IT (occurrence: IT)
  Receive Date: 20190710
  Receipt Date: 20190710
  Transmission Date: 20191004
  Serious: Yes (Hospitalization, Other)
  Sender: FDA-Public Use
  Company Number: PHHY2019IT153500

PATIENT
  Age: 14 Year
  Sex: Female

DRUGS (2)
  1. PARACETAMOL [Interacting]
     Active Substance: ACETAMINOPHEN
     Indication: PRODUCT USED FOR UNKNOWN INDICATION
     Dosage: UNK
     Route: 065
  2. LAMOTRIGINE. [Suspect]
     Active Substance: LAMOTRIGINE
     Indication: EPILEPSY
     Dosage: UNK
     Route: 065

REACTIONS (3)
  - Drug level decreased [Unknown]
  - Drug interaction [Unknown]
  - Seizure [Unknown]
